FAERS Safety Report 8502130-1 (Version None)
Quarter: 2012Q2

REPORT INFORMATION
  Report Type: 
  Country: None (occurrence: None)
  Receive Date: 20120405
  Receipt Date: 20101026
  Transmission Date: 20120825
  Serious: Yes (Other)
  Sender: FDA-Public Use
  Company Number: PHHY2010US66608

PATIENT
  Age: 58 Year
  Sex: Female

DRUGS (2)
  1. RECLAST [Suspect]
     Indication: OSTEOPENIA
     Dosage: 5 MG, INTRAVENOUS
     Route: 042
     Dates: start: 20100927
  2. RECLAST [Suspect]
     Indication: GASTROINTESTINAL DISORDER
     Dosage: 5 MG, INTRAVENOUS
     Route: 042
     Dates: start: 20100927

REACTIONS (4)
  - OCULAR HYPERAEMIA [None]
  - SKIN DISORDER [None]
  - EYE SWELLING [None]
  - HYPERSENSITIVITY [None]
